FAERS Safety Report 7619596-1 (Version None)
Quarter: 2011Q3

REPORT INFORMATION
  Report Type: 
  Country: None (occurrence: None)
  Receive Date: 20110719
  Receipt Date: 20110713
  Transmission Date: 20111222
  Serious: Yes (Other)
  Sender: FDA-Public Use
  Company Number: US-JNJFOC-20100900404

PATIENT
  Sex: Male

DRUGS (2)
  1. LEVAQUIN [Suspect]
     Indication: JOINT INJURY
     Route: 048
     Dates: start: 20100701
  2. LEVAQUIN [Suspect]
     Indication: ARTHRALGIA
     Route: 048
     Dates: start: 20090710

REACTIONS (4)
  - PAPILLOMA [None]
  - ANAPHYLACTIC REACTION [None]
  - TENOSYNOVITIS [None]
  - VOMITING [None]
